FAERS Safety Report 10541243 (Version 2)
Quarter: 2014Q4

REPORT INFORMATION
  Report Type: Spontaneous
  Country: US (occurrence: None)
  Receive Date: 20141010
  Receipt Date: 20141205
  Transmission Date: 20150529
  Serious: No
  Sender: FDA-Public Use
  Company Number: 163-POMAL-14061332

PATIENT
  Age: 68 Year
  Sex: Female

DRUGS (16)
  1. ZOFRAN (ONDANSETRON HYDROCHLORIDE) [Concomitant]
  2. METOLAZONE. [Concomitant]
     Active Substance: METOLAZONE
  3. SINGULAIR (MONTELUKAST SODIUM) [Concomitant]
  4. ADVAIR DISKUS (SERETIDE) [Concomitant]
  5. VITAMIN B6 [Concomitant]
     Active Substance: PYRIDOXINE HYDROCHLORIDE
  6. COLACE (DOCUSTATE SODIUM) [Concomitant]
  7. FLONASE [Concomitant]
     Active Substance: FLUTICASONE PROPIONATE
  8. BENEFIBER (CYAMOPSIS TETRAGONOLOBA GUM) [Concomitant]
  9. LANSOPRAZOLE. [Concomitant]
     Active Substance: LANSOPRAZOLE
  10. TAZAROTENE (TAZAROTENE) [Concomitant]
  11. NEURONTIN [Concomitant]
     Active Substance: GABAPENTIN
  12. DOXYCYCLINE. [Concomitant]
     Active Substance: DOXYCYCLINE
  13. ACYCLOVIR (ACICLOVIR) [Concomitant]
  14. ATENOLOL (ATENOLOL) [Concomitant]
     Active Substance: ATENOLOL
  15. POMALYST [Suspect]
     Active Substance: POMALIDOMIDE
     Indication: PLASMA CELL MYELOMA
     Dosage: 3 MG, 21 IN 21 D, PO
     Route: 048
     Dates: start: 20140521
  16. PAXIL [Concomitant]
     Active Substance: PAROXETINE HYDROCHLORIDE

REACTIONS (4)
  - Hypotension [None]
  - Weight decreased [None]
  - Pyrexia [None]
  - Dizziness [None]

NARRATIVE: CASE EVENT DATE: 2014
